FAERS Safety Report 7358689-3 (Version None)
Quarter: 2011Q1

REPORT INFORMATION
  Report Type: 
  Country: None (occurrence: None)
  Receive Date: 20110317
  Receipt Date: 20110311
  Transmission Date: 20110831
  Serious: Yes (Other)
  Sender: FDA-Public Use
  Company Number: US-PFIZER INC-2006061379

PATIENT
  Sex: Female

DRUGS (2)
  1. NEURONTIN [Suspect]
     Indication: ILL-DEFINED DISORDER
     Dosage: 4 MG, 2X/DAY
     Route: 065
     Dates: start: 20000406
  2. NEURONTIN [Suspect]
     Dosage: 1200 MG, 3X/DAY
     Dates: start: 20000605, end: 20010211

REACTIONS (1)
  - SUICIDE ATTEMPT [None]
